FAERS Safety Report 4384893-2 (Version None)
Quarter: 2004Q2

REPORT INFORMATION
  Report Type: 
  Country: None (occurrence: None)
  Receive Date: 20040625
  Receipt Date: 20040615
  Transmission Date: 20050107
  Serious: Yes (Other)
  Sender: FDA-Public Use
  Company Number: US-MERCK-0406USA01799

PATIENT
  Age: 80 Year
  Sex: Female

DRUGS (2)
  1. [THERAPY UNSPECIFIED] [Concomitant]
     Route: 065
  2. VIOXX [Suspect]
     Route: 048

REACTIONS (4)
  - CARCINOMA [None]
  - CARDIAC DISORDER [None]
  - DUODENAL ULCER PERFORATION [None]
  - HYPERTENSION [None]
